FAERS Safety Report 5261403-9 (Version None)
Quarter: 2007Q1

REPORT INFORMATION
  Report Type: 
  Country: None (occurrence: None)
  Receive Date: 20070307
  Receipt Date: 20070221
  Transmission Date: 20070707
  Serious: Yes (Death)
  Sender: FDA-Public Use
  Company Number: CERZ-11534

PATIENT
  Age: 67 Year
  Sex: Female
  Weight: 82.7 kg

DRUGS (1)
  1. CEREZYME [Suspect]
     Indication: GAUCHER'S DISEASE
     Dosage: 3600 UNITS Q2WKS IV
     Route: 042
     Dates: start: 20020612, end: 20070123

REACTIONS (4)
  - ACUTE ABDOMEN [None]
  - FALL [None]
  - MOUTH HAEMORRHAGE [None]
  - RECTAL HAEMORRHAGE [None]
